FAERS Safety Report 4863471-2 (Version None)
Quarter: 2005Q4

REPORT INFORMATION
  Report Type: 
  Country: None (occurrence: None)
  Receive Date: 20051222
  Receipt Date: 20050217
  Transmission Date: 20060501
  Serious: No
  Sender: FDA-Public Use
  Company Number: US-GLAXOSMITHKLINE-A0546085A

PATIENT
  Sex: Male

DRUGS (1)
  1. FLONASE [Suspect]
     Dosage: 2SPR SINGLE DOSE
     Route: 045
     Dates: start: 20050208

REACTIONS (3)
  - EAR CONGESTION [None]
  - HYPOACUSIS [None]
  - TINNITUS [None]
